FAERS Safety Report 8503061-3 (Version None)
Quarter: 2012Q3

REPORT INFORMATION
  Report Type: 
  Country: None (occurrence: None)
  Receive Date: 20120711
  Receipt Date: 20120702
  Transmission Date: 20120928
  Serious: Yes (Hospitalization, Other)
  Sender: FDA-Public Use
  Company Number: US-ELI_LILLY_AND_COMPANY-US201207002336

PATIENT
  Age: 79 Year
  Sex: Female

DRUGS (13)
  1. NAMENDA [Concomitant]
     Dosage: 10 MG, UNK
  2. POTASSIUM CHLORIDE [Concomitant]
  3. FORTEO [Suspect]
     Indication: OSTEOPOROSIS
     Dosage: UNK, QD
     Dates: start: 20120301, end: 20120601
  4. MEGACE [Concomitant]
     Indication: DECREASED APPETITE
  5. CLINORIL [Concomitant]
  6. ASPIRIN [Concomitant]
     Dosage: 81 MG, UNK
  7. PRAVASTATIN [Concomitant]
     Dosage: ONLY TOOK FOR 3 OR 4 DAYS
  8. ADVAIR DISKUS 100/50 [Concomitant]
  9. ARICEPT [Concomitant]
     Dosage: 23 MG, UNK
  10. AMLODIPINE [Concomitant]
     Dosage: 2.5 MG, UNK
  11. MULTI-VITAMIN [Concomitant]
  12. VITAMIN D [Concomitant]
     Dosage: 50000 U, WEEKLY (1/W)
  13. SINGULAIR [Concomitant]

REACTIONS (2)
  - CEREBROVASCULAR ACCIDENT [None]
  - BLINDNESS [None]
